FAERS Safety Report 6111847-8 (Version None)
Quarter: 2009Q1

REPORT INFORMATION
  Report Type: 
  Country: None (occurrence: None)
  Receive Date: 20090311
  Receipt Date: 20090304
  Transmission Date: 20090719
  Serious: Yes (Other)
  Sender: FDA-Public Use
  Company Number: IE-ASTRAZENECA-2009GB00600

PATIENT
  Age: 25519 Day
  Sex: Female

DRUGS (5)
  1. CRESTOR [Suspect]
     Indication: DYSLIPIDAEMIA
     Route: 048
     Dates: start: 20081020, end: 20081223
  2. PRAVASTATIN [Concomitant]
  3. ACETAMINOPHEN W/ CODEINE [Concomitant]
  4. OMEPRAZOLE [Concomitant]
  5. DIOVAN HCT [Concomitant]

REACTIONS (2)
  - JAUNDICE [None]
  - LIVER FUNCTION TEST ABNORMAL [None]
